FAERS Safety Report 25043988 (Version 1)
Quarter: 2025Q1

REPORT INFORMATION
  Report Type: Spontaneous
  Country: IN (occurrence: IN)
  Receive Date: 20250306
  Receipt Date: 20250306
  Transmission Date: 20250408
  Serious: Yes (Death)
  Sender: ROCHE
  Company Number: IN-ROCHE-10000146993

PATIENT
  Age: 59 Year
  Sex: Female
  Weight: 56.3 kg

DRUGS (1)
  1. POLIVY [Suspect]
     Active Substance: POLATUZUMAB VEDOTIN-PIIQ
     Indication: Non-Hodgkin^s lymphoma
     Route: 042
     Dates: start: 20241130

REACTIONS (5)
  - Off label use [Unknown]
  - Off label use [Unknown]
  - Cough [Fatal]
  - Heart rate decreased [Fatal]
  - Cardiac arrest [Fatal]

NARRATIVE: CASE EVENT DATE: 20250212
